FAERS Safety Report 6898382-4 (Version None)
Quarter: 2010Q3

REPORT INFORMATION
  Report Type: 
  Country: None (occurrence: None)
  Receive Date: 20100802
  Receipt Date: 20071002
  Transmission Date: 20110219
  Serious: No
  Sender: FDA-Public Use
  Company Number: US-PFIZER INC-2007082469

PATIENT
  Sex: Female
  Weight: 59.09 kg

DRUGS (4)
  1. LYRICA [Suspect]
     Indication: BURNING SENSATION
  2. CRESTOR [Concomitant]
  3. DRUG, UNSPECIFIED [Concomitant]
  4. ACETYLSALICYLIC ACID SRT [Concomitant]

REACTIONS (3)
  - BURNING SENSATION [None]
  - DRUG INEFFECTIVE [None]
  - SOMNOLENCE [None]
